FAERS Safety Report 12047503 (Version 1)
Quarter: 2016Q1

REPORT INFORMATION
  Report Type: Spontaneous
  Country: US (occurrence: US)
  Receive Date: 20160208
  Receipt Date: 20160208
  Transmission Date: 20160526
  Serious: Yes (Other)
  Sender: FDA-Public Use
  Company Number: US-BAYER-2016-020370

PATIENT
  Age: 70 Year
  Sex: Female
  Weight: 62.59 kg

DRUGS (6)
  1. BAYER GENUINE ASPIRIN [Suspect]
     Active Substance: ASPIRIN
     Indication: NASAL CONGESTION
  2. TOPROL XL [Concomitant]
     Active Substance: METOPROLOL SUCCINATE
     Dosage: UNK
  3. BAYER GENUINE ASPIRIN [Suspect]
     Active Substance: ASPIRIN
     Indication: NASOPHARYNGITIS
  4. BAYER LOW DOSE [Suspect]
     Active Substance: ASPIRIN
     Indication: ISCHAEMIC HEART DISEASE PROPHYLAXIS
     Dosage: 1 DF, QD FOR 4-6 MONTHS
     Route: 048
     Dates: start: 2001, end: 2001
  5. BAYER GENUINE ASPIRIN [Suspect]
     Active Substance: ASPIRIN
     Indication: HEADACHE
     Dosage: 1 DF, PRN
     Route: 048
  6. BAYER GENUINE ASPIRIN [Suspect]
     Active Substance: ASPIRIN
     Indication: PAIN

REACTIONS (2)
  - Large intestinal haemorrhage [None]
  - Product use issue [None]

NARRATIVE: CASE EVENT DATE: 2001
